FAERS Safety Report 4364575-3 (Version None)
Quarter: 2004Q2

REPORT INFORMATION
  Report Type: 
  Country: None (occurrence: None)
  Receive Date: 20040521
  Receipt Date: 20040510
  Transmission Date: 20050107
  Serious: Yes (Hospitalization)
  Sender: FDA-Public Use
  Company Number: 2004-115822-NL

PATIENT
  Age: 41 Year
  Sex: Female

DRUGS (2)
  1. MIRTAZAPINE [Suspect]
     Indication: MENTAL DISORDER
     Dosage: 30 MG PRN ORAL
     Route: 048
     Dates: start: 20031015, end: 20031022
  2. MIRTAZAPINE [Suspect]
     Indication: SLEEP DISORDER
     Dosage: 30 MG PRN ORAL
     Route: 048
     Dates: start: 20031015, end: 20031022

REACTIONS (9)
  - BLOOD CREATINE INCREASED [None]
  - BLOOD POTASSIUM INCREASED [None]
  - DRUG INEFFECTIVE [None]
  - DYSPHAGIA [None]
  - ERYTHEMA [None]
  - EYELID OEDEMA [None]
  - HAEMOGLOBIN DECREASED [None]
  - HYPERSENSITIVITY [None]
  - LOCALISED OEDEMA [None]
